FAERS Safety Report 24003409 (Version 5)
Quarter: 2024Q3

REPORT INFORMATION
  Report Type: Spontaneous
  Country: JP (occurrence: JP)
  Receive Date: 20240624
  Receipt Date: 20240902
  Transmission Date: 20241017
  Serious: Yes (Life-Threatening, Hospitalization, Other)
  Sender: CSL BEHRING
  Company Number: JP-BEH-2024173940

PATIENT
  Age: 51 Year
  Sex: Male
  Weight: 80 kg

DRUGS (8)
  1. IDELVION [Suspect]
     Active Substance: COAGULATION FACTOR IX RECOMBINANT HUMAN
     Indication: Cerebral haemorrhage
     Dosage: 4000 IU, EVERY 10 DAYS
     Route: 042
  2. IDELVION [Suspect]
     Active Substance: COAGULATION FACTOR IX RECOMBINANT HUMAN
     Indication: Cerebral haemorrhage
     Dosage: 4000 IU, EVERY 10 DAYS
     Route: 042
  3. IDELVION [Suspect]
     Active Substance: COAGULATION FACTOR IX RECOMBINANT HUMAN
     Indication: Thalamus haemorrhage
     Dosage: 12000 IU, SINGLE
     Route: 042
     Dates: start: 20240618, end: 20240618
  4. IDELVION [Suspect]
     Active Substance: COAGULATION FACTOR IX RECOMBINANT HUMAN
     Indication: Thalamus haemorrhage
     Dosage: 12000 IU, SINGLE
     Route: 042
     Dates: start: 20240618, end: 20240618
  5. TELMISARTAN [Concomitant]
     Active Substance: TELMISARTAN
     Dosage: 40 MG, QD
     Route: 048
  6. NIFEDIPINE [Concomitant]
     Active Substance: NIFEDIPINE
     Dosage: 10 MG, QD
     Route: 048
  7. DESCOVY [Concomitant]
     Active Substance: EMTRICITABINE\TENOFOVIR ALAFENAMIDE FUMARATE
     Dosage: UNK, QD
     Route: 048
  8. ISENTRESS [Concomitant]
     Active Substance: RALTEGRAVIR POTASSIUM
     Dosage: 1200 MG, QD
     Route: 048

REACTIONS (6)
  - Cerebral haemorrhage [Recovered/Resolved with Sequelae]
  - Hypertension [Unknown]
  - Thalamus haemorrhage [Unknown]
  - Hemiplegia [Unknown]
  - Medication error [Unknown]
  - Off label use [Unknown]

NARRATIVE: CASE EVENT DATE: 20240618
